FAERS Safety Report 7700758-X (Version None)
Quarter: 2011Q3

REPORT INFORMATION
  Report Type: 
  Country: None (occurrence: None)
  Receive Date: 20110822
  Receipt Date: 20110811
  Transmission Date: 20111222
  Serious: Yes (Death, Hospitalization)
  Sender: FDA-Public Use
  Company Number: HU-ROCHE-696210

PATIENT
  Sex: Male
  Weight: 74 kg

DRUGS (43)
  1. BEVACIZUMAB [Suspect]
     Indication: NON-SMALL CELL LUNG CANCER
     Dosage: FREQUENCY: 1X, FORM INFUSION;
     Route: 042
     Dates: start: 20091109
  2. GEMCITABINE [Suspect]
     Dosage: FREQUENCY: 2XEVERY THREE WEEK, FORM: INFUSION
     Route: 042
  3. GEMCITABINE [Suspect]
     Dosage: FREQ: DAY 1 + 8 EVERY 3 WEEKS
     Route: 042
     Dates: start: 20100304
  4. ONDANSETRON [Concomitant]
     Indication: PROPHYLAXIS
     Dates: start: 20091109
  5. NEUPOGEN [Concomitant]
     Indication: GRANULOCYTOPENIA
     Dates: start: 20100201, end: 20100203
  6. BEVACIZUMAB [Suspect]
     Dosage: LAST DOSE PRIOR TO SAE: 16 FEBRUARY 2010,INFUSION, FREQUENCY: 1XDAILY
     Route: 042
  7. CARBOPLATIN [Suspect]
     Route: 042
  8. MEGESIN [Concomitant]
     Dosage: INDICATION: LOSS OF WEIGHT (CACHEXIA)
     Dates: start: 20091109, end: 20100407
  9. SINECOD [Concomitant]
     Indication: BRONCHOSCOPY
     Dates: start: 20091022, end: 20091022
  10. NEORECORMON [Concomitant]
     Indication: ANAEMIA
     Dates: start: 20091215, end: 20100407
  11. GEMCITABINE [Suspect]
     Indication: NON-SMALL CELL LUNG CANCER
     Dosage: FORM INFUSION, ON DAY 1 AND DAY 8; FREQUENCY: 1XDAILY;
     Route: 042
     Dates: start: 20091109, end: 20091117
  12. GEMCITABINE [Suspect]
     Dosage: LAST DOSE PRIOR TO SAE: 01 APRIL 2010
     Route: 042
     Dates: end: 20100401
  13. SPIRIVA [Concomitant]
  14. AUGMENTIN '125' [Concomitant]
     Indication: BRONCHOPNEUMONIA
     Dates: start: 20091020, end: 20091026
  15. EPREX [Concomitant]
     Indication: ANAEMIA
     Dates: start: 20091127, end: 20091220
  16. BISOPROLOL FUMARATE [Concomitant]
     Dates: start: 20091215
  17. GEMCITABINE [Suspect]
     Dosage: LAST DOSE OF IV GEMCITABINE PRIOR TO EVENT ON 25 JANUARY 2010.
     Route: 042
  18. CARBOPLATIN [Suspect]
     Dosage: LAST DOSE PRIOR TO EVENT ON 25 JANUARY 2010.
     Route: 042
  19. SERETIDE [Concomitant]
  20. KALIUM-R [Concomitant]
     Indication: PROPHYLAXIS
     Dates: start: 20091020, end: 20091026
  21. MEDROL [Concomitant]
     Indication: GRANULOCYTOPENIA
     Dosage: INDICATION: COPD ACUTE EXACERBATION
     Dates: start: 20091020, end: 20091029
  22. NEUPOGEN [Concomitant]
     Dates: start: 20100403
  23. BEVACIZUMAB [Suspect]
     Dosage: FREQUENCY AS PER PROTOCOL, LAST DOSE OF PRIOR TO EVENT ON 25 JANUARY 2010. FORM INFUSION
     Route: 042
  24. SPIRIVA [Concomitant]
     Dates: start: 20091104, end: 20100407
  25. LIDOCAINE [Concomitant]
     Indication: BRONCHOSCOPY
     Dates: start: 20091022, end: 20091022
  26. MEDROL [Concomitant]
     Dosage: INDICATION: THROMBOCYTOPENIA
     Dates: start: 20100202, end: 20100407
  27. GEMCITABINE [Suspect]
     Route: 042
     Dates: start: 20091117
  28. SERETIDE [Concomitant]
     Dosage: DRUG REPORTED AS SERETIDE 500/50; DOSE REPORTED AS 1000 MG/ 100 MG, 500/ 50
     Dates: start: 20091104, end: 20100407
  29. CIFRAN [Concomitant]
     Indication: BRONCHOPNEUMONIA
     Dates: start: 20091020, end: 20091024
  30. KALIUM-R [Concomitant]
     Dates: start: 20100202, end: 20100407
  31. HYDROMORPHONE HCL [Concomitant]
     Indication: CHEST PAIN
     Dates: start: 20100104, end: 20100407
  32. NEULASTA [Concomitant]
     Indication: PROPHYLAXIS
     Dates: start: 20100217, end: 20100407
  33. BEVACIZUMAB [Suspect]
     Dosage: LAST DOSE PRIOR TO SAE: 16 FEBRUARY 2010. LAST DOSE PRIOR TO LEUKOPENIA WAS 23 MAR 2010
     Route: 042
     Dates: end: 20100323
  34. GEMCITABINE [Suspect]
     Dosage: FREQ: DAY 1 + 8 EVERY 3 WEEKS
     Route: 042
     Dates: end: 20100223
  35. CARBOPLATIN [Suspect]
     Dosage: LAST DOSE PRIOR TO SAE: 23 MARCH 2010, FREQUENCY: 1XDAILY
     Route: 042
     Dates: end: 20100323
  36. AUGMENTIN '125' [Concomitant]
     Dates: start: 20100322, end: 20100323
  37. KALIUM-R [Concomitant]
     Dosage: INDICATION: PROPHYLAXIS OF HYPOKALEMIA CAUSED BY USING OF MEDROL
     Dates: start: 20091116, end: 20091117
  38. MEDROL [Concomitant]
     Dates: start: 20091116, end: 20091117
  39. CARBOPLATIN [Suspect]
     Indication: NON-SMALL CELL LUNG CANCER
     Dosage: FORM: INFUSION;
     Route: 042
     Dates: start: 20091109
  40. MEGESIN [Concomitant]
  41. NEORECORMON [Concomitant]
  42. BISOPROLOL FUMARATE [Concomitant]
     Dates: start: 20100104, end: 20100407
  43. BERODUAL [Concomitant]
     Dosage: DRUG - BERODUAL INHALATION
     Dates: start: 20091020, end: 20091029

REACTIONS (7)
  - PNEUMONIA [None]
  - ANAEMIA [None]
  - LEUKOPENIA [None]
  - INFECTIOUS PLEURAL EFFUSION [None]
  - THROMBOCYTOPENIA [None]
  - NEUTROPENIA [None]
  - GRANULOCYTOPENIA [None]
